FAERS Safety Report 19873795 (Version 1)
Quarter: 2021Q3

REPORT INFORMATION
  Report Type: Spontaneous
  Country: IN (occurrence: IN)
  Receive Date: 20210922
  Receipt Date: 20210922
  Transmission Date: 20211014
  Serious: Yes (Other)
  Sender: FDA-Public Use
  Company Number: IN-COOPERSURGICAL, INC.-IN-2021CPS002845

PATIENT
  Age: 36 Year
  Sex: Female

DRUGS (1)
  1. PARAGARD T 380A [Suspect]
     Active Substance: COPPER
     Indication: CONTRACEPTION
     Dosage: UNK
     Route: 015
     Dates: start: 2009, end: 201411

REACTIONS (10)
  - Device dislocation [Recovered/Resolved]
  - Abortion induced [Recovered/Resolved]
  - Calculus bladder [Recovered/Resolved]
  - Uterine perforation [Recovered/Resolved]
  - Escherichia test positive [Recovered/Resolved]
  - Leukocytosis [Recovered/Resolved]
  - Pregnancy with contraceptive device [Recovered/Resolved]
  - Complication associated with device [Recovered/Resolved]
  - Drug ineffective [Unknown]
  - Bladder injury [Recovered/Resolved]

NARRATIVE: CASE EVENT DATE: 2013
